FAERS Safety Report 19041979 (Version 1)
Quarter: 2021Q1

REPORT INFORMATION
  Report Type: Spontaneous
  Country: BR (occurrence: BR)
  Receive Date: 20210323
  Receipt Date: 20210323
  Transmission Date: 20210420
  Serious: Yes (Other)
  Sender: FDA-Public Use
  Company Number: BR-BRISTOL-MYERS SQUIBB COMPANY-BMS-2021-024939

PATIENT
  Age: 72 Year
  Sex: Female

DRUGS (2)
  1. TEPEV [Concomitant]
     Indication: PRODUCT USED FOR UNKNOWN INDICATION
     Route: 065
  2. HYDREA [Suspect]
     Active Substance: HYDROXYUREA
     Indication: LEUKAEMIA
     Dosage: 2 OR 3 PER DAY SINCE 6 YEARS
     Route: 065

REACTIONS (3)
  - Renal impairment [Recovered/Resolved]
  - Platelet count increased [Unknown]
  - Headache [Unknown]
